FAERS Safety Report 4604779-5 (Version None)
Quarter: 2005Q1

REPORT INFORMATION
  Report Type: 
  Country: None (occurrence: None)
  Receive Date: 20050224
  Receipt Date: 20050117
  Transmission Date: 20050727
  Serious: No
  Sender: FDA-Public Use
  Company Number: SU-2005-003005

PATIENT
  Age: 54 Year
  Sex: Female
  Weight: 77.1115 kg

DRUGS (5)
  1. BENICAR [Suspect]
     Indication: HYPERTENSION
     Dosage: 40 MG QD PO
     Route: 048
     Dates: start: 20040702, end: 20040723
  2. NEXIUM [Concomitant]
  3. METAMORPHAN [Concomitant]
  4. PRAVACHOL [Concomitant]
  5. XANAX [Concomitant]

REACTIONS (2)
  - DIZZINESS [None]
  - NAUSEA [None]
